FAERS Safety Report 25836574 (Version 1)
Quarter: 2025Q3

REPORT INFORMATION
  Report Type: Report from Study
  Country: KR (occurrence: KR)
  Receive Date: 20250923
  Receipt Date: 20250923
  Transmission Date: 20251020
  Serious: Yes (Other)
  Sender: ABBVIE
  Company Number: KR-ABBVIE-6468474

PATIENT
  Age: 55 Year
  Sex: Female
  Weight: 52 kg

DRUGS (23)
  1. RESTASIS [Suspect]
     Active Substance: CYCLOSPORINE
     Indication: Dry eye
     Route: 047
     Dates: start: 20230412
  2. X-PREVEN [Concomitant]
     Indication: Vitamin supplementation
     Dosage: X-PREVEN TAB
     Route: 048
     Dates: start: 20250814
  3. NEWHYALUNI [Concomitant]
     Indication: Dry eye
     Route: 047
     Dates: start: 20230412
  4. BILASTINE [Concomitant]
     Active Substance: BILASTINE
     Indication: Oedema peripheral
     Dosage: BILASTINE CAP
     Route: 048
     Dates: start: 20250724
  5. PAINLESS SEMI SR [Concomitant]
     Indication: Rheumatoid arthritis
     Dosage: PAINLESS SEMI SR TAB
     Route: 048
     Dates: start: 20250529, end: 20250917
  6. MUCOTRA SR [Concomitant]
     Indication: Gastrointestinal disorder prophylaxis
     Dosage: MUCOTRA SR TAB 150MG
     Route: 048
     Dates: start: 20211019
  7. C-TLEX [Concomitant]
     Indication: Rheumatoid arthritis
     Dosage: C-TLEX CAP 200MG
     Route: 048
     Dates: start: 20241105, end: 20250709
  8. ROVAZET [Concomitant]
     Indication: Hyperlipidaemia
     Dosage: ROVAZET TAB 10/5MG
     Route: 048
     Dates: start: 20231010
  9. SHINGRIX [Concomitant]
     Active Substance: RECOMBINANT VARICELLA ZOSTER VIRUS (VZV) GLYCOPROTEIN E
     Indication: Antiviral prophylaxis
     Dosage: SHINGRIX INJ
     Route: 030
     Dates: start: 20250429, end: 20250429
  10. Yuhan methotrexate [Concomitant]
     Indication: Rheumatoid arthritis
     Dosage: METHOTREXATE YUHAN TAB 2.5MG
     Route: 048
     Dates: start: 20220705
  11. CARBOMER [Concomitant]
     Active Substance: CARBOMER
     Indication: Dry eye
     Route: 047
     Dates: start: 20230614
  12. CELECOXIB [Concomitant]
     Active Substance: CELECOXIB
     Indication: Rheumatoid arthritis
     Dosage: CELECOXIB CAP 2MG
     Route: 048
     Dates: start: 20250821
  13. Alzil [Concomitant]
     Indication: Tremor
     Dosage: ALZIL TAB 5MG
     Route: 048
     Dates: start: 20230405, end: 20250513
  14. PELUBI CR [Concomitant]
     Indication: Rheumatoid arthritis
     Dosage: PELUBI CR TAB
     Route: 048
     Dates: start: 20250710, end: 20250820
  15. CELETAL [Concomitant]
     Indication: Tremor
     Dosage: CELETAL ER CAP 100MG
     Route: 048
     Dates: start: 20240529
  16. MEGATRUE GOLD [Concomitant]
     Indication: Vitamin supplementation
     Dosage: MEGATRUE GOLD TAB
     Route: 048
     Dates: start: 20211019, end: 20250813
  17. Sinil folic acid [Concomitant]
     Indication: Vitamin supplementation
     Dosage: FOLIC ACID SINIL TAB 1MG
     Route: 048
     Dates: start: 20121203
  18. NOLTEC [Concomitant]
     Indication: Gastrointestinal disorder prophylaxis
     Dosage: NOLTEC TAB 10MG
     Route: 048
     Dates: start: 20240430
  19. Suprinex [Concomitant]
     Indication: Peripheral vascular disorder
     Dosage: SARPOREIN SR TAB
     Route: 048
     Dates: start: 20240430
  20. THEOBROMINE [Concomitant]
     Active Substance: THEOBROMINE
     Indication: Cough
     Dosage: ANYCOUGH CAP 300MG
     Route: 048
     Dates: start: 20250626, end: 20250813
  21. ERDOLANT [Concomitant]
     Indication: Cough
     Route: 048
     Dates: start: 20250710, end: 20250820
  22. NIFERON CR [Concomitant]
     Indication: Hypertension
     Dosage: NIFERON CR 40 TAB
     Route: 048
     Dates: start: 20231010
  23. RINVOQ [Suspect]
     Active Substance: UPADACITINIB
     Indication: Rheumatoid arthritis
     Dosage: FORM STRENGTH: 1 TABLET ?MODIFIED-RELEASE FILM-COATED TABLET
     Route: 048
     Dates: start: 20250306

REACTIONS (1)
  - Interstitial lung disease [Not Recovered/Not Resolved]

NARRATIVE: CASE EVENT DATE: 20250814
